FAERS Safety Report 9205206 (Version 1)
Quarter: 2013Q2

REPORT INFORMATION
  Report Type: Spontaneous
  Country: CH (occurrence: CH)
  Receive Date: 20130402
  Receipt Date: 20130402
  Transmission Date: 20140414
  Serious: Yes (Hospitalization)
  Sender: FDA-Public Use
  Company Number: PHHY2013CH031418

PATIENT
  Age: 20 Year
  Sex: Male
  Weight: 77 kg

DRUGS (15)
  1. VENLAFAXINE [Suspect]
     Dosage: 150 MG
     Route: 048
     Dates: start: 20121002
  2. VENLAFAXINE [Interacting]
     Dosage: 187.5 MG
     Route: 048
     Dates: start: 20121105, end: 20121223
  3. VENLAFAXINE [Interacting]
     Dosage: 75 MG
     Dates: start: 20121224, end: 20130107
  4. ZYPREXA [Interacting]
     Dosage: 2.5 MG,
     Route: 048
     Dates: start: 20121203
  5. DEPAKINE CHRONO [Concomitant]
     Dosage: 1 G
     Dates: start: 20121205
  6. REMERON [Concomitant]
     Dosage: 15 MG
     Dates: start: 20121102
  7. REMERON [Concomitant]
     Dosage: 30 MG
     Dates: start: 20121103
  8. CYMBALTA [Concomitant]
     Dosage: 30 MG
     Dates: start: 20130103, end: 20130104
  9. CYMBALTA [Concomitant]
     Dosage: 60 MG
     Dates: start: 20130105
  10. TEMESTA [Concomitant]
     Dosage: 4 MG
     Dates: start: 20121011, end: 20121105
  11. TEMESTA [Concomitant]
     Dosage: 5 MG,
     Dates: start: 20121106, end: 20121207
  12. TEMESTA [Concomitant]
     Dosage: 4 MG
     Dates: start: 20121208, end: 20121212
  13. TEMESTA [Concomitant]
     Dosage: 3 MG,
     Dates: start: 20121213, end: 20130108
  14. TEMESTA [Concomitant]
     Dosage: 2 MG
     Dates: start: 20130109, end: 20130120
  15. TEMESTA [Concomitant]
     Dosage: 1 MG
     Dates: start: 20130121

REACTIONS (2)
  - Urinary retention [Recovered/Resolved]
  - Drug interaction [Recovered/Resolved]
